FAERS Safety Report 9256487 (Version 4)
Quarter: 2013Q2

REPORT INFORMATION
  Report Type: Spontaneous
  Country: US (occurrence: US)
  Receive Date: 20130426
  Receipt Date: 20130619
  Transmission Date: 20140414
  Serious: Yes (Hospitalization)
  Sender: FDA-Public Use
  Company Number: US-BIOGENIDEC-2013BI036474

PATIENT
  Age: 38 Year
  Sex: Female

DRUGS (16)
  1. TYSABRI [Suspect]
     Indication: MULTIPLE SCLEROSIS
     Route: 042
     Dates: start: 20080619, end: 20130228
  2. PRAMIPEXOLE [Concomitant]
     Indication: RESTLESS LEGS SYNDROME
  3. TAMSULOSIN [Concomitant]
     Indication: URINARY RETENTION
  4. PROZAC [Concomitant]
     Indication: DEPRESSED MOOD
  5. CYMBALTA [Concomitant]
     Indication: DEPRESSED MOOD
  6. IMITREX [Concomitant]
     Indication: MIGRAINE
  7. TRILEPTAL [Concomitant]
     Indication: PAIN
  8. LYRICA [Concomitant]
     Indication: PAIN
  9. NEURONTIN [Concomitant]
     Indication: PAIN
  10. MS CONTIN [Concomitant]
     Indication: PAIN
  11. BACLOFEN [Concomitant]
     Indication: MUSCLE SPASTICITY
  12. ZANAFLEX [Concomitant]
     Indication: MUSCLE SPASTICITY
  13. OXYBUTININE [Concomitant]
     Indication: HYPERTONIC BLADDER
  14. DILTIAZEM [Concomitant]
     Indication: BLOOD PRESSURE ABNORMAL
  15. AMARYL [Concomitant]
     Indication: DIABETES MELLITUS
  16. FOSAMAX [Concomitant]
     Indication: OSTEOPOROSIS

REACTIONS (9)
  - Urosepsis [Recovered/Resolved]
  - Meningitis [Not Recovered/Not Resolved]
  - Encephalitis [Recovered/Resolved]
  - Staphylococcal infection [Recovered/Resolved]
  - Cystitis [Recovered/Resolved]
  - Pyrexia [Recovered/Resolved]
  - Bacterial disease carrier [Recovered/Resolved]
  - Pulmonary embolism [Recovered/Resolved]
  - Muscular weakness [Not Recovered/Not Resolved]
